FAERS Safety Report 8241357-3 (Version None)
Quarter: 2012Q1

REPORT INFORMATION
  Report Type: 
  Country: None (occurrence: None)
  Receive Date: 20120328
  Receipt Date: 20120319
  Transmission Date: 20120608
  Serious: Yes (Hospitalization, Other)
  Sender: FDA-Public Use
  Company Number: PHHY2012GB024379

PATIENT
  Age: 48 Year
  Sex: Male

DRUGS (5)
  1. SPIRONOLACTONE [Concomitant]
  2. LISINOPRIL [Concomitant]
  3. CHLORTHALIDONE [Suspect]
     Dosage: 25 MG, UNK
  4. LERCANIDIPINE [Concomitant]
  5. CHLORTHALIDONE [Suspect]
     Indication: SODIUM RETENTION
     Dosage: TITRATED UPTO 50 MG, UNK

REACTIONS (7)
  - CONDITION AGGRAVATED [None]
  - PAIN [None]
  - RHABDOMYOLYSIS [None]
  - GYNAECOMASTIA [None]
  - MUSCULAR WEAKNESS [None]
  - HYPOKALAEMIA [None]
  - ADRENAL ADENOMA [None]
